FAERS Safety Report 19720427 (Version 3)
Quarter: 2022Q1

REPORT INFORMATION
  Report Type: Spontaneous
  Country: US (occurrence: US)
  Receive Date: 20210818
  Receipt Date: 20220316
  Transmission Date: 20220423
  Serious: Yes (Other)
  Sender: FDA-Public Use
  Company Number: US-GILEAD-2021-0544294

PATIENT
  Sex: Male
  Weight: 104.31 kg

DRUGS (38)
  1. ATRIPLA [Suspect]
     Active Substance: EFAVIRENZ\EMTRICITABINE\TENOFOVIR DISOPROXIL FUMARATE
     Indication: HIV infection
     Dosage: UNK
     Route: 048
     Dates: start: 2004
  2. ATRIPLA [Suspect]
     Active Substance: EFAVIRENZ\EMTRICITABINE\TENOFOVIR DISOPROXIL FUMARATE
     Dosage: UNK
     Route: 048
     Dates: start: 2006, end: 201803
  3. TRUVADA [Suspect]
     Active Substance: EMTRICITABINE\TENOFOVIR DISOPROXIL FUMARATE
     Indication: HIV infection
     Dosage: UNK
     Route: 048
     Dates: start: 2004, end: 2006
  4. GENVOYA [Concomitant]
     Active Substance: COBICISTAT\ELVITEGRAVIR\EMTRICITABINE\TENOFOVIR ALAFENAMIDE FUMARATE
  5. COMBIVIR [Concomitant]
     Active Substance: LAMIVUDINE\ZIDOVUDINE
  6. KALETRA [Concomitant]
     Active Substance: LOPINAVIR\RITONAVIR
  7. ZOLPIDEM [Concomitant]
     Active Substance: ZOLPIDEM TARTRATE
  8. PANTOPRAZOLE [Concomitant]
     Active Substance: PANTOPRAZOLE
  9. MELOXICAM [Concomitant]
     Active Substance: MELOXICAM
  10. PROPRANOLOL [Concomitant]
     Active Substance: PROPRANOLOL HYDROCHLORIDE
  11. CIALIS [Concomitant]
     Active Substance: TADALAFIL
  12. SILDENAFIL [Concomitant]
     Active Substance: SILDENAFIL
  13. OMEPRAZOLE [Concomitant]
     Active Substance: OMEPRAZOLE
  14. HYDROCODONE [Concomitant]
     Active Substance: HYDROCODONE
  15. TIZANIDINE [Concomitant]
     Active Substance: TIZANIDINE
  16. NAPROXEN [Concomitant]
     Active Substance: NAPROXEN
  17. ALPRAZOLAM [Concomitant]
     Active Substance: ALPRAZOLAM
  18. CRESTOR [Concomitant]
     Active Substance: ROSUVASTATIN CALCIUM
  19. DOXYCYCLINE [Concomitant]
     Active Substance: DOXYCYCLINE
  20. TRAZODONE [Concomitant]
     Active Substance: TRAZODONE HYDROCHLORIDE
  21. CELEBREX [Concomitant]
     Active Substance: CELECOXIB
  22. IBUPROFEN [Concomitant]
     Active Substance: IBUPROFEN
  23. LOVAZA [Concomitant]
     Active Substance: OMEGA-3-ACID ETHYL ESTERS
  24. SIMVASTATIN [Concomitant]
     Active Substance: SIMVASTATIN
  25. CHLORHEXIDINE GLUCONATE [Concomitant]
     Active Substance: CHLORHEXIDINE GLUCONATE
  26. ADENOSINE [Concomitant]
     Active Substance: ADENOSINE
  27. AMOXICILLIN [Concomitant]
     Active Substance: AMOXICILLIN
  28. DEXILANT [Concomitant]
     Active Substance: DEXLANSOPRAZOLE
  29. GABAPENTIN [Concomitant]
     Active Substance: GABAPENTIN
  30. SOMA [Concomitant]
     Active Substance: CARISOPRODOL
  31. TRAMADOL [Concomitant]
     Active Substance: TRAMADOL
  32. LIPITOR [Concomitant]
     Active Substance: ATORVASTATIN CALCIUM
  33. DICYCLOMINE [Concomitant]
     Active Substance: DICYCLOMINE HYDROCHLORIDE
  34. PREVACID [Concomitant]
     Active Substance: LANSOPRAZOLE
  35. ACCUPRIL [Concomitant]
     Active Substance: QUINAPRIL HYDROCHLORIDE
  36. VALIUM [Concomitant]
     Active Substance: DIAZEPAM
  37. MEDROL [Concomitant]
     Active Substance: METHYLPREDNISOLONE
  38. ESZOPICLONE [Concomitant]
     Active Substance: ESZOPICLONE

REACTIONS (12)
  - Chronic kidney disease [Not Recovered/Not Resolved]
  - Renal injury [Unknown]
  - Glomerular filtration rate decreased [Unknown]
  - Blood creatinine increased [Unknown]
  - Pain [Not Recovered/Not Resolved]
  - Emotional distress [Not Recovered/Not Resolved]
  - Anxiety [Not Recovered/Not Resolved]
  - Anhedonia [Not Recovered/Not Resolved]
  - Renal impairment [Unknown]
  - Hypertension [Not Recovered/Not Resolved]
  - Stress [Not Recovered/Not Resolved]
  - Insomnia [Not Recovered/Not Resolved]

NARRATIVE: CASE EVENT DATE: 20060101
